FAERS Safety Report 7823798-9 (Version None)
Quarter: 2011Q4

REPORT INFORMATION
  Report Type: 
  Country: None (occurrence: None)
  Receive Date: 20111019
  Receipt Date: 20111011
  Transmission Date: 20120403
  Serious: Yes (Other)
  Sender: FDA-Public Use
  Company Number: US-ASTELLAS-2011US006662

PATIENT

DRUGS (1)
  1. PROTOPIC [Suspect]
     Indication: PSORIASIS
     Dosage: 0.1 %, UID/QD
     Route: 061
     Dates: start: 20080101

REACTIONS (2)
  - OFF LABEL USE [None]
  - BREAST CANCER [None]
